FAERS Safety Report 11375745 (Version 1)
Quarter: 2015Q3

REPORT INFORMATION
  Report Type: Spontaneous
  Country: DE (occurrence: DE)
  Receive Date: 20150813
  Receipt Date: 20150813
  Transmission Date: 20151125
  Serious: Yes (Life-Threatening, Other)
  Sender: FDA-Public Use
  Company Number: DE-GLAXOSMITHKLINE-DE2015GSK111022

PATIENT
  Age: 30 Year
  Sex: Male

DRUGS (6)
  1. ENAHEXAL [Concomitant]
     Active Substance: ENALAPRIL MALEATE
     Dosage: 1.25 MG, QD
  2. AMFEBUTAMONE HYDROCHLORIDE [Concomitant]
     Dosage: 150 MG, QD
     Dates: start: 20131009
  3. ELONTRIL [Suspect]
     Active Substance: BUPROPION HYDROCHLORIDE
     Indication: PRODUCT USED FOR UNKNOWN INDICATION
     Dosage: 300 MG, UNK
     Dates: start: 20131009, end: 20131105
  4. BISOPROLOL [Concomitant]
     Active Substance: BISOPROLOL
     Dosage: 1.25 MG, QD
  5. VALDOXAN [Concomitant]
     Active Substance: AGOMELATINE
     Dosage: 25 MG, QD
  6. LORAZEPAM. [Concomitant]
     Active Substance: LORAZEPAM
     Dosage: 0.5 MG, PRN

REACTIONS (1)
  - Depression suicidal [Unknown]

NARRATIVE: CASE EVENT DATE: 20131105
